FAERS Safety Report 6524496-4 (Version None)
Quarter: 2009Q4

REPORT INFORMATION
  Report Type: 
  Country: None (occurrence: None)
  Receive Date: 20091231
  Receipt Date: 20091231
  Transmission Date: 20100525
  Serious: Yes (Other)
  Sender: FDA-Public Use
  Company Number: None

PATIENT
  Age: 8 Year
  Sex: Male
  Weight: 31.7518 kg

DRUGS (1)
  1. TAMIFLU [Suspect]
     Indication: H1N1 INFLUENZA
     Dosage: 60MG TWICE A DAY PO, DOSES
     Route: 048
     Dates: start: 20091118, end: 20091119

REACTIONS (4)
  - ABNORMAL DREAMS [None]
  - CHILLS [None]
  - NIGHTMARE [None]
  - PALPITATIONS [None]
